FAERS Safety Report 17652883 (Version 2)
Quarter: 2022Q2

REPORT INFORMATION
  Report Type: Report from Study
  Country: US (occurrence: US)
  Receive Date: 20200409
  Receipt Date: 20220511
  Transmission Date: 20220720
  Serious: No
  Sender: FDA-Public Use
  Company Number: US-TEVA-2020-US-1220156

PATIENT
  Age: 30 Year
  Sex: Female

DRUGS (2)
  1. CLARAVIS [Suspect]
     Active Substance: ISOTRETINOIN
     Route: 065
     Dates: start: 20191031, end: 20200207
  2. HUMAN CHORIONIC GONADOTROPIN [Concomitant]
     Active Substance: GONADOTROPHIN, CHORIONIC

REACTIONS (1)
  - Human chorionic gonadotropin increased [Unknown]
